FAERS Safety Report 4653647-1 (Version None)
Quarter: 2005Q2

REPORT INFORMATION
  Report Type: 
  Country: None (occurrence: None)
  Receive Date: 20050408
  Receipt Date: 20050117
  Transmission Date: 20051028
  Serious: No
  Sender: FDA-Public Use
  Company Number: 230199K05USA

PATIENT
  Age: 37 Year
  Sex: Female

DRUGS (3)
  1. REBIF [Suspect]
     Indication: MULTIPLE SCLEROSIS
     Dosage: 8.8 MCG, 3 IN 1 WEEKS, SUBCUTANEOUS
     Route: 058
     Dates: start: 20050103
  2. BLOOD PRESSURE PILLS(ANTIHYPERTENSIVES) [Concomitant]
  3. BIRTH CONTROL PILLS(ORAL CONTRACEPTIVE NOS) [Concomitant]

REACTIONS (5)
  - ARTHRALGIA [None]
  - CHILLS [None]
  - FEELING HOT [None]
  - NAUSEA [None]
  - VOMITING [None]
